FAERS Safety Report 6020008-2 (Version None)
Quarter: 2008Q4

REPORT INFORMATION
  Report Type: 
  Country: None (occurrence: None)
  Receive Date: 20081226
  Receipt Date: 20081223
  Transmission Date: 20090506
  Serious: Yes (Hospitalization)
  Sender: FDA-Public Use
  Company Number: US-BRISTOL-MYERS SQUIBB COMPANY-14420384

PATIENT
  Age: 54 Year
  Sex: Female
  Weight: 47 kg

DRUGS (2)
  1. ERBITUX [Suspect]
     Indication: CERVIX CARCINOMA
     Dosage: CYCLE1=3WKS LOADINGDOSE 400MG/M2;SUBSEQUENT 250MG/M2;1STINF.=04MAR08;OTHER INF.=13OCT08 CYCLE=11
     Route: 042
     Dates: start: 20081103, end: 20081103
  2. CISPLATIN [Suspect]
     Indication: CERVIX CARCINOMA
     Dosage: DAY 1 AND 8(30MG/M2);WEEKLY;1ST COURSE=04MAR08;OTHER COURSE=13OCT08; CYCLE=11.
     Dates: start: 20081103, end: 20081103

REACTIONS (5)
  - BACTERAEMIA [None]
  - HAEMOGLOBIN DECREASED [None]
  - NAUSEA [None]
  - URINARY TRACT INFECTION [None]
  - VOMITING [None]
